FAERS Safety Report 5837988-8 (Version None)
Quarter: 2008Q3

REPORT INFORMATION
  Report Type: 
  Country: None (occurrence: None)
  Receive Date: 20080808
  Receipt Date: 20080124
  Transmission Date: 20090109
  Serious: No
  Sender: FDA-Public Use
  Company Number: A0705187A

PATIENT
  Age: 43 Year
  Sex: Female

DRUGS (3)
  1. PAXIL [Suspect]
     Indication: ANXIETY DISORDER
     Dosage: 25MG PER DAY
     Route: 048
     Dates: start: 19930101
  2. CALCIUM [Concomitant]
  3. VITAMIN TAB [Concomitant]

REACTIONS (2)
  - PHARMACEUTICAL PRODUCT COMPLAINT [None]
  - RASH PRURITIC [None]
